FAERS Safety Report 6069387-0 (Version None)
Quarter: 2009Q1

REPORT INFORMATION
  Report Type: 
  Country: None (occurrence: None)
  Receive Date: 20090206
  Receipt Date: 20090126
  Transmission Date: 20090719
  Serious: Yes (Other)
  Sender: FDA-Public Use
  Company Number: US-TYCO HEALTHCARE/MALLINCKRODT-T200801054

PATIENT

DRUGS (28)
  1. RESTORIL [Suspect]
     Indication: DEPRESSION
     Dosage: UNK, QD
     Dates: start: 20031001, end: 20070101
  2. RESTORIL [Suspect]
     Indication: ANXIETY
  3. SEROQUEL [Suspect]
     Indication: DEPRESSION
     Dosage: UNK, QD
     Dates: start: 20031001, end: 20070501
  4. SEROQUEL [Suspect]
     Indication: ANXIETY
  5. WELLBUTRIN [Suspect]
     Indication: DEPRESSION
     Dosage: UNK, QD
     Dates: start: 20031001, end: 20070501
  6. WELLBUTRIN [Suspect]
     Indication: ANXIETY
  7. LEXAPRO [Suspect]
     Indication: DEPRESSION
     Dosage: UNK, QD
     Dates: start: 20031001, end: 20060101
  8. LEXAPRO [Suspect]
     Indication: ANXIETY
  9. CYMBALTA [Suspect]
     Indication: DEPRESSION
     Dosage: UNK, QD
     Dates: start: 20031001, end: 20070501
  10. CYMBALTA [Suspect]
     Indication: ANXIETY
  11. ZOLOFT [Suspect]
     Indication: DEPRESSION
     Dosage: UNK
     Dates: start: 20031001, end: 20070501
  12. ZOLOFT [Suspect]
     Indication: ANXIETY
  13. XANAX [Suspect]
     Indication: DEPRESSION
     Dosage: UNK, QD
     Dates: start: 20031001, end: 20070501
  14. XANAX [Suspect]
     Indication: ANXIETY
  15. XANAX [Suspect]
     Indication: SLEEP DISORDER
  16. NEURONTIN [Suspect]
     Indication: AMNESIA
     Dosage: UNK
     Dates: start: 20031001, end: 20070501
  17. NEURONTIN [Suspect]
     Indication: RESTLESS LEGS SYNDROME
  18. TRAZODONE HCL [Suspect]
     Indication: DEPRESSION
     Dosage: UNK
     Dates: start: 20031001, end: 20070501
  19. TRAZODONE HCL [Suspect]
     Indication: ANXIETY
  20. EFFEXOR [Suspect]
     Dosage: UNK
     Dates: start: 20031001
  21. LISINOPRIL [Concomitant]
     Indication: BLOOD PRESSURE ABNORMAL
  22. FENOFIBRATE [Concomitant]
     Indication: BLOOD TRIGLYCERIDES ABNORMAL
  23. FENOFIBRATE [Concomitant]
     Indication: BLOOD CHOLESTEROL ABNORMAL
  24. LEVOTHYROXINE [Concomitant]
     Indication: THYROID DISORDER
  25. AMBIEN [Concomitant]
     Indication: SLEEP DISORDER
  26. HYDROCHLOROTHIAZIDE [Concomitant]
  27. HYDROCONI BITARTRAS [Concomitant]
     Indication: BACK PAIN
  28. CARISOPRODOL [Concomitant]
     Indication: BACK PAIN

REACTIONS (54)
  - ABNORMAL BEHAVIOUR [None]
  - AMNESIA [None]
  - ANGER [None]
  - ANXIETY [None]
  - APHASIA [None]
  - ASBESTOSIS [None]
  - ATTENTION DEFICIT/HYPERACTIVITY DISORDER [None]
  - BLOOD CHOLESTEROL ABNORMAL [None]
  - BLOOD PRESSURE INCREASED [None]
  - BLOOD TRIGLYCERIDES ABNORMAL [None]
  - BRUXISM [None]
  - CONFUSIONAL STATE [None]
  - CONSTIPATION [None]
  - CONVULSION [None]
  - DEPRESSION [None]
  - DRUG WITHDRAWAL HEADACHE [None]
  - DYSKINESIA [None]
  - EMOTIONAL DISTRESS [None]
  - FEELING ABNORMAL [None]
  - GAIT DISTURBANCE [None]
  - HALLUCINATION [None]
  - HOSTILITY [None]
  - HYPERHIDROSIS [None]
  - HYPOTHYROIDISM [None]
  - LETHARGY [None]
  - MENTAL DISORDER [None]
  - MENTAL IMPAIRMENT [None]
  - MUSCLE SPASMS [None]
  - MUSCLE TWITCHING [None]
  - NIGHT SWEATS [None]
  - NIGHTMARE [None]
  - PAIN [None]
  - PALLOR [None]
  - PANCREATITIS [None]
  - PANIC ATTACK [None]
  - PARANOIA [None]
  - PYREXIA [None]
  - RENAL FAILURE [None]
  - RESTLESS LEGS SYNDROME [None]
  - ROAD TRAFFIC ACCIDENT [None]
  - SCREAMING [None]
  - SLEEP APNOEA SYNDROME [None]
  - STRESS [None]
  - SUICIDAL IDEATION [None]
  - SUICIDE ATTEMPT [None]
  - TACHYCARDIA [None]
  - TARDIVE DYSKINESIA [None]
  - TERMINAL INSOMNIA [None]
  - THYROID DISORDER [None]
  - TREMOR [None]
  - URINARY INCONTINENCE [None]
  - VOMITING [None]
  - WEIGHT DECREASED [None]
  - WITHDRAWAL SYNDROME [None]
